FAERS Safety Report 13987007 (Version 1)
Quarter: 2017Q3

REPORT INFORMATION
  Report Type: Spontaneous
  Country: US (occurrence: US)
  Receive Date: 20170919
  Receipt Date: 20170919
  Transmission Date: 20171128
  Serious: No
  Sender: FDA-Public Use
  Company Number: US-ALLERGAN-1734093US

PATIENT
  Age: 24 Year
  Sex: Female

DRUGS (2)
  1. LILETTA [Suspect]
     Active Substance: LEVONORGESTREL
     Indication: PRODUCT USED FOR UNKNOWN INDICATION
     Dosage: 52 MG
     Route: 015
     Dates: start: 20170419, end: 2017
  2. LILETTA [Suspect]
     Active Substance: LEVONORGESTREL
     Dosage: 52 MG
     Route: 015
     Dates: start: 2017

REACTIONS (3)
  - Device expulsion [Recovered/Resolved]
  - Medical device discomfort [Unknown]
  - Dyspareunia [Unknown]

NARRATIVE: CASE EVENT DATE: 20170419
